FAERS Safety Report 5502689-2 (Version None)
Quarter: 2007Q4

REPORT INFORMATION
  Report Type: 
  Country: None (occurrence: None)
  Receive Date: 20071031
  Receipt Date: 20071018
  Transmission Date: 20080405
  Serious: Yes (Hospitalization)
  Sender: FDA-Public Use
  Company Number: GB-TYCO HEALTHCARE/MALLINCKRODT-T200701272

PATIENT

DRUGS (1)
  1. METHADOSE [Suspect]
     Route: 048

REACTIONS (5)
  - ACUTE RESPIRATORY DISTRESS SYNDROME [None]
  - MIOSIS [None]
  - OVERDOSE [None]
  - PULMONARY OEDEMA [None]
  - SINUS TACHYCARDIA [None]
